FAERS Safety Report 11141189 (Version 2)
Quarter: 2017Q3

REPORT INFORMATION
  Report Type: Spontaneous
  Country: US (occurrence: US)
  Receive Date: 20150525
  Receipt Date: 20170920
  Transmission Date: 20171127
  Serious: Yes (Other)
  Sender: FDA-Public Use
  Company Number: US-JNJFOC-20140912784

PATIENT
  Sex: Male

DRUGS (3)
  1. RITALIN [Suspect]
     Active Substance: METHYLPHENIDATE HYDROCHLORIDE
     Indication: ATTENTION DEFICIT/HYPERACTIVITY DISORDER
     Dosage: MORNING
     Route: 065
  2. RISPERDAL [Suspect]
     Active Substance: RISPERIDONE
     Indication: PSYCHIATRIC SYMPTOM
     Dosage: ONE TABLET IN THE MORNING AND ONE TABLET AT NIGHT
     Route: 048
     Dates: start: 19971120, end: 2002
  3. RISPERDAL [Suspect]
     Active Substance: RISPERIDONE
     Indication: PSYCHIATRIC SYMPTOM
     Route: 048
     Dates: start: 1995

REACTIONS (3)
  - Glucose tolerance impaired [Unknown]
  - Obesity [Unknown]
  - Gynaecomastia [Unknown]
